FAERS Safety Report 7439065-1 (Version None)
Quarter: 2011Q2

REPORT INFORMATION
  Report Type: 
  Country: None (occurrence: None)
  Receive Date: 20110427
  Receipt Date: 20110418
  Transmission Date: 20111010
  Serious: No
  Sender: FDA-Public Use
  Company Number: US-BIOGENIDEC-2011BI014838

PATIENT
  Sex: Female

DRUGS (2)
  1. AVONEX [Suspect]
     Route: 030
     Dates: start: 20070407, end: 20081010
  2. AVONEX [Suspect]
     Indication: MULTIPLE SCLEROSIS
     Route: 030
     Dates: start: 20110312

REACTIONS (13)
  - MIGRAINE [None]
  - NAUSEA [None]
  - INJECTION SITE PAIN [None]
  - CHILLS [None]
  - BALANCE DISORDER [None]
  - DEPRESSION [None]
  - SENSORY DISTURBANCE [None]
  - EYE PAIN [None]
  - ARTHRALGIA [None]
  - PAIN [None]
  - DIZZINESS [None]
  - HEMICEPHALALGIA [None]
  - DIARRHOEA [None]
